FAERS Safety Report 5417462-3 (Version None)
Quarter: 2007Q3

REPORT INFORMATION
  Report Type: 
  Country: None (occurrence: None)
  Receive Date: 20070718
  Receipt Date: 20070411
  Transmission Date: 20080115
  Serious: Yes (Other)
  Sender: FDA-Public Use
  Company Number: 2007028875

PATIENT
  Sex: Male

DRUGS (2)
  1. CELEBREX [Suspect]
     Indication: PAIN
     Dosage: 200 MG (1 IN 1 D)
     Dates: start: 20060101
  2. DRUG, UNSPECIFIED (DRUG, UNPECIFIED) [Suspect]
     Indication: PAIN
     Dosage: 10/325 MG (AS NECESSARY)
     Dates: start: 20050101

REACTIONS (1)
  - ABDOMINAL PAIN UPPER [None]
